FAERS Safety Report 14076647 (Version 1)
Quarter: 2017Q4

REPORT INFORMATION
  Report Type: Spontaneous
  Country: US (occurrence: US)
  Receive Date: 20171011
  Receipt Date: 20171011
  Transmission Date: 20180321
  Serious: Yes (Other)
  Sender: FDA-Public Use
  Company Number: US-TEVA-813637USA

PATIENT
  Sex: Female

DRUGS (2)
  1. PROAIR HFA [Suspect]
     Active Substance: ALBUTEROL SULFATE
     Dosage: SAMPLE FROM HOSPITAL
  2. PROAIR HFA [Suspect]
     Active Substance: ALBUTEROL SULFATE

REACTIONS (5)
  - Visual impairment [Unknown]
  - Intercepted drug administration error [Unknown]
  - Drug dose omission [Unknown]
  - Macular degeneration [Unknown]
  - Product expiration date issue [Unknown]

NARRATIVE: CASE EVENT DATE: 2017
